FAERS Safety Report 14684465 (Version 1)
Quarter: 2018Q1

REPORT INFORMATION
  Report Type: Spontaneous
  Country: US (occurrence: US)
  Receive Date: 20180327
  Receipt Date: 20180327
  Transmission Date: 20180509
  Serious: Yes (Life-Threatening, Hospitalization)
  Sender: FDA-Public Use
  Company Number: US-WEST-WARD PHARMACEUTICALS CORP.-US-H14001-18-02111

PATIENT
  Age: 59 Year
  Sex: Female

DRUGS (5)
  1. CELLCEPT [Concomitant]
     Active Substance: MYCOPHENOLATE MOFETIL\MYCOPHENOLATE MOFETIL HYDROCHLORIDE
     Indication: URTICARIA
     Route: 065
  2. CA-VIT D [Suspect]
     Active Substance: CALCIUM\VITAMIN D
     Indication: OSTEOPOROSIS
     Route: 065
  3. HYDROCHLOROTHIAZIDE. [Suspect]
     Active Substance: HYDROCHLOROTHIAZIDE
     Indication: HYPERTENSION
     Route: 065
  4. CA-VIT D [Suspect]
     Active Substance: CALCIUM\VITAMIN D
     Indication: OSTEOPOROSIS
     Route: 065
  5. CA-VIT D [Suspect]
     Active Substance: CALCIUM\VITAMIN D
     Indication: OSTEOPOROSIS
     Route: 065

REACTIONS (4)
  - Wrong dose [None]
  - Milk-alkali syndrome [Recovering/Resolving]
  - Pancreatitis [Unknown]
  - Hypercalcaemia [Recovered/Resolved]
